FAERS Safety Report 7320705-2 (Version None)
Quarter: 2011Q1

REPORT INFORMATION
  Report Type: 
  Country: None (occurrence: None)
  Receive Date: 20110228
  Receipt Date: 20110223
  Transmission Date: 20110831
  Serious: Yes (Life-Threatening, Hospitalization, Other)
  Sender: FDA-Public Use
  Company Number: US-PFIZER INC-2008035629

PATIENT
  Sex: Female
  Weight: 58.97 kg

DRUGS (3)
  1. LORTAB [Concomitant]
  2. CHANTIX [Suspect]
     Indication: SMOKING CESSATION THERAPY
     Dosage: UNK
     Dates: start: 20080201
  3. XANAX [Concomitant]

REACTIONS (10)
  - ABNORMAL BEHAVIOUR [None]
  - LOSS OF CONSCIOUSNESS [None]
  - DEPRESSION [None]
  - TENOSYNOVITIS [None]
  - SUICIDE ATTEMPT [None]
  - JOINT INJURY [None]
  - BLOOD ETHANOL INCREASED [None]
  - PERSONALITY CHANGE [None]
  - ANXIETY [None]
  - INSOMNIA [None]
